FAERS Safety Report 8571645 (Version 8)
Quarter: 2013Q3

REPORT INFORMATION
  Report Type: Spontaneous
  Country: US (occurrence: US)
  Receive Date: 20120521
  Receipt Date: 20130909
  Transmission Date: 20140515
  Serious: Yes (Hospitalization, Disabling, Other)
  Sender: FDA-Public Use
  Company Number: US-009507513-1205USA02848

PATIENT
  Sex: Female

DRUGS (2)
  1. FOSAMAX [Suspect]
     Indication: OSTEOPENIA
     Dosage: UNK
     Route: 048
     Dates: start: 1995, end: 1996
  2. FOSAMAX [Suspect]
     Indication: BLOOD CHOLESTEROL INCREASED

REACTIONS (22)
  - Femur fracture [Not Recovered/Not Resolved]
  - Open reduction of fracture [Unknown]
  - Pancreatitis [Unknown]
  - Ovarian cancer [Unknown]
  - Surgery [Unknown]
  - Anaemia postoperative [Unknown]
  - Wheezing [Unknown]
  - Osteoporosis [Unknown]
  - Rib fracture [Unknown]
  - Chronic obstructive pulmonary disease [Not Recovered/Not Resolved]
  - Hysterectomy [Unknown]
  - Spinal osteoarthritis [Unknown]
  - Aortic arteriosclerosis [Unknown]
  - Cholelithiasis [Unknown]
  - Anaemia [Unknown]
  - Hypertension [Unknown]
  - Arthropathy [Unknown]
  - Cardiac murmur [Unknown]
  - Bundle branch block left [Unknown]
  - Oedema peripheral [Unknown]
  - Gastrooesophageal reflux disease [Unknown]
  - Off label use [Unknown]
